FAERS Safety Report 7909132-4 (Version None)
Quarter: 2011Q4

REPORT INFORMATION
  Report Type: 
  Country: None (occurrence: None)
  Receive Date: 20111111
  Receipt Date: 20101027
  Transmission Date: 20120403
  Serious: No
  Sender: FDA-Public Use
  Company Number: US-GLAXOSMITHKLINE-A0889115A

PATIENT
  Sex: Female

DRUGS (1)
  1. COREG [Suspect]

REACTIONS (1)
  - ADVERSE EVENT [None]
